FAERS Safety Report 9508623 (Version 3)
Quarter: 2013Q4

REPORT INFORMATION
  Report Type: Spontaneous
  Country: IT (occurrence: IT)
  Receive Date: 20130909
  Receipt Date: 20131024
  Transmission Date: 20140711
  Serious: Yes (Life-Threatening)
  Sender: FDA-Public Use
  Company Number: IT-BAXTER-2013BAX034747

PATIENT
  Age: 44 Year
  Sex: Male

DRUGS (4)
  1. FEIBA [Suspect]
     Indication: HAEMOPHILIA A WITH ANTI FACTOR VIII
     Route: 042
     Dates: start: 20130610, end: 20130612
  2. FEIBA [Suspect]
     Indication: HAEMOSTASIS
     Route: 065
     Dates: start: 20050913
  3. FEIBA [Suspect]
     Indication: HAEMORRHAGE PROPHYLAXIS
  4. AMOXICILLINA [Concomitant]
     Indication: HYPERSENSITIVITY
     Route: 065

REACTIONS (3)
  - Drug ineffective [Recovered/Resolved]
  - Post procedural haemorrhage [Recovered/Resolved]
  - Shock haemorrhagic [Recovered/Resolved]
